FAERS Safety Report 16656405 (Version 1)
Quarter: 2019Q3

REPORT INFORMATION
  Report Type: Spontaneous
  Country: US (occurrence: US)
  Receive Date: 20190801
  Receipt Date: 20190801
  Transmission Date: 20191004
  Serious: No
  Sender: FDA-Public Use
  Company Number: US-PACIRA-201600025

PATIENT
  Age: 5 Year
  Sex: Male

DRUGS (1)
  1. DEPOCYT [Suspect]
     Active Substance: CYTARABINE
     Indication: ACUTE LYMPHOCYTIC LEUKAEMIA
     Dosage: UNCONFIRMED/UNKNOWN DOSING INFORMATION, HOWEVER REPORTED AS IV 2550 MG, FREQUENCY : UNK
     Route: 065
     Dates: start: 20151222

REACTIONS (1)
  - Off label use [Unknown]

NARRATIVE: CASE EVENT DATE: 20151222
